FAERS Safety Report 12100923 (Version 1)
Quarter: 2016Q1

REPORT INFORMATION
  Report Type: Spontaneous
  Country: BR (occurrence: BR)
  Receive Date: 20160222
  Receipt Date: 20160222
  Transmission Date: 20160526
  Serious: Yes (Other)
  Sender: FDA-Public Use
  Company Number: BR-JNJFOC-20160216074

PATIENT
  Sex: Female

DRUGS (2)
  1. STELARA [Suspect]
     Active Substance: USTEKINUMAB
     Indication: PSORIASIS
     Route: 058
  2. STELARA [Suspect]
     Active Substance: USTEKINUMAB
     Indication: ARTHRITIS
     Route: 058

REACTIONS (6)
  - Product use issue [Unknown]
  - Accident [Unknown]
  - Psoriasis [Unknown]
  - Arthritis [Unknown]
  - Off label use [Unknown]
  - Clavicle fracture [Unknown]

NARRATIVE: CASE EVENT DATE: 2015
